FAERS Safety Report 4704362-7 (Version None)
Quarter: 2005Q2

REPORT INFORMATION
  Report Type: 
  Country: None (occurrence: None)
  Receive Date: 20050630
  Receipt Date: 20050623
  Transmission Date: 20051028
  Serious: Yes (Other)
  Sender: FDA-Public Use
  Company Number: PHBS2005IT09167

PATIENT
  Age: 12 Year
  Sex: Male

DRUGS (6)
  1. CYCLOSPORINE [Suspect]
     Indication: STEM CELL TRANSPLANT
     Route: 065
  2. METHOTREXATE [Suspect]
     Indication: STEM CELL TRANSPLANT
  3. ATGAM [Suspect]
     Indication: STEM CELL TRANSPLANT
     Dosage: 9 MG/KG/D
  4. THIOTEPA [Concomitant]
     Indication: STEM CELL TRANSPLANT
     Dosage: 8 MG/KG/D
  5. CYCLOPHOSPHAMIDE [Concomitant]
     Dosage: 120 MG/KG/D
  6. IRRADIATION [Concomitant]

REACTIONS (5)
  - CYTOMEGALOVIRUS INFECTION [None]
  - GRAFT VERSUS HOST DISEASE [None]
  - LUNG DISORDER [None]
  - MUCOSAL INFLAMMATION [None]
  - OBLITERATIVE BRONCHIOLITIS [None]
